FAERS Safety Report 6069028-2 (Version None)
Quarter: 2009Q1

REPORT INFORMATION
  Report Type: 
  Country: None (occurrence: None)
  Receive Date: 20090206
  Receipt Date: 20090128
  Transmission Date: 20090719
  Serious: Yes (Hospitalization)
  Sender: FDA-Public Use
  Company Number: US-ELI_LILLY_AND_COMPANY-US200901000688

PATIENT
  Sex: Female
  Weight: 74.83 kg

DRUGS (8)
  1. BYETTA [Suspect]
     Indication: TYPE 2 DIABETES MELLITUS
     Dosage: 5 UG, 2/D
     Route: 058
     Dates: start: 20060101
  2. BYETTA [Suspect]
     Dosage: 5 UG, 2/D
     Route: 058
  3. GABAPENTIN [Concomitant]
     Dosage: UNK, UNKNOWN
  4. FERROUS SULPHATE [Concomitant]
     Dosage: UNK, UNKNOWN
  5. PAROXETINE HCL [Concomitant]
     Dosage: UNK, UNKNOWN
  6. LISINOPRIL [Concomitant]
     Dosage: UNK, UNKNOWN
  7. ALLEGRA [Concomitant]
     Dosage: UNK, UNKNOWN
  8. GLIPIZIDE [Concomitant]
     Dosage: UNK, UNKNOWN

REACTIONS (3)
  - ARTHRITIS [None]
  - FALL [None]
  - GASTROENTERITIS [None]
